FAERS Safety Report 23629826 (Version 3)
Quarter: 2024Q3

REPORT INFORMATION
  Report Type: Spontaneous
  Country: JP (occurrence: JP)
  Receive Date: 20240314
  Receipt Date: 20240711
  Transmission Date: 20241017
  Serious: Yes (Other)
  Sender: JOHNSON AND JOHNSON
  Company Number: JP-JNJFOC-20240334918

PATIENT
  Age: 23 Year
  Sex: Male
  Weight: 65.6 kg

DRUGS (15)
  1. PALIPERIDONE PALMITATE [Suspect]
     Active Substance: PALIPERIDONE PALMITATE
     Indication: Schizophrenia
     Route: 030
     Dates: start: 20240126, end: 20240126
  2. PALIPERIDONE PALMITATE [Suspect]
     Active Substance: PALIPERIDONE PALMITATE
     Route: 030
     Dates: start: 20240202, end: 20240202
  3. PALIPERIDONE PALMITATE [Suspect]
     Active Substance: PALIPERIDONE PALMITATE
     Route: 030
     Dates: start: 20240301, end: 20240301
  4. INVEGA [Concomitant]
     Active Substance: PALIPERIDONE
     Indication: Schizophrenia
     Route: 048
     Dates: start: 20240114, end: 20240125
  5. INVEGA [Concomitant]
     Active Substance: PALIPERIDONE
     Dosage: DOSE UNKNOWN
     Route: 048
     Dates: start: 2024, end: 2024
  6. INVEGA [Concomitant]
     Active Substance: PALIPERIDONE
     Route: 048
     Dates: start: 20240523
  7. VALPROATE SODIUM [Concomitant]
     Active Substance: VALPROATE SODIUM
     Route: 048
     Dates: start: 20240114
  8. OLANZAPINE [Concomitant]
     Active Substance: OLANZAPINE
     Indication: Schizophrenia
     Dosage: DOSE UNKNOWN
     Route: 065
     Dates: end: 20240113
  9. OLANZAPINE [Concomitant]
     Active Substance: OLANZAPINE
     Route: 065
     Dates: start: 20240201, end: 20240207
  10. OLANZAPINE [Concomitant]
     Active Substance: OLANZAPINE
     Route: 065
     Dates: start: 20240208, end: 20240223
  11. OLANZAPINE [Concomitant]
     Active Substance: OLANZAPINE
     Route: 065
     Dates: start: 20240224, end: 2024
  12. OLANZAPINE [Concomitant]
     Active Substance: OLANZAPINE
     Route: 065
     Dates: start: 2024, end: 20240523
  13. LITHIUM CARBONATE [Concomitant]
     Active Substance: LITHIUM CARBONATE
     Dosage: DOSE UNKNOWN
  14. LEVOMEPROMAZINE [Concomitant]
     Active Substance: LEVOMEPROMAZINE
     Dosage: DOSE UNKNOWN
     Route: 065
  15. ADENINE [Concomitant]
     Active Substance: ADENINE
     Dosage: DOSE UNKNOWN
     Route: 065

REACTIONS (5)
  - Pneumonia [Recovered/Resolved]
  - Thinking abnormal [Unknown]
  - Hypomania [Unknown]
  - Polydipsia [Unknown]
  - Malaise [Unknown]

NARRATIVE: CASE EVENT DATE: 20240101
